FAERS Safety Report 5787655-4 (Version None)
Quarter: 2008Q2

REPORT INFORMATION
  Report Type: 
  Country: None (occurrence: None)
  Receive Date: 20080625
  Receipt Date: 20080614
  Transmission Date: 20081010
  Serious: Yes (Death, Other)
  Sender: FDA-Public Use
  Company Number: CO-BAYER-200820468GPV

PATIENT

DRUGS (14)
  1. ALEMTUZUMAB [Suspect]
     Indication: RENAL TRANSPLANT
     Dosage: TOTAL DAILY DOSE: 30 MG
     Route: 042
  2. METHYLPREDNISOLONE [Suspect]
     Indication: RENAL TRANSPLANT
     Dosage: TOTAL DAILY DOSE: 250 MG
     Route: 042
  3. METHYLPREDNISOLONE [Suspect]
     Dosage: TOTAL DAILY DOSE: 125 MG
     Route: 042
  4. METHYLPREDNISOLONE [Suspect]
     Dosage: TOTAL DAILY DOSE: 500 MG
     Route: 042
  5. CYCLOSPORINE [Suspect]
     Indication: IMMUNOSUPPRESSION
     Route: 065
  6. TACROLIMUS [Suspect]
     Indication: IMMUNOSUPPRESSION
     Route: 065
  7. MYCOPHENOLATE MOFETIL [Suspect]
     Indication: IMMUNOSUPPRESSION
     Route: 065
  8. SODIUM MYCOPHENOLATE [Suspect]
     Indication: IMMUNOSUPPRESSION
     Route: 065
  9. ACETAMINOPHEN [Concomitant]
     Indication: PROPHYLAXIS
     Dosage: TOTAL DAILY DOSE: 1 G
     Route: 065
  10. CLEMASTINE FUMARATE [Concomitant]
     Indication: PROPHYLAXIS
     Dosage: TOTAL DAILY DOSE: 2 MG
     Route: 065
  11. CEPHALOSPORIN [Concomitant]
     Indication: PROPHYLAXIS
     Route: 065
  12. VALGANCYCLOVIR [Concomitant]
     Indication: ANTIVIRAL PROPHYLAXIS
     Route: 065
  13. TRIMETHOPRIM + SULFAMETHOXAZOLE [Concomitant]
     Indication: INFECTION PROPHYLAXIS
     Route: 065
  14. NYSTATIN [Concomitant]
     Indication: ANTIFUNGAL PROPHYLAXIS
     Route: 065

REACTIONS (2)
  - PYELONEPHRITIS [None]
  - UROSEPSIS [None]
